FAERS Safety Report 5388064-2 (Version None)
Quarter: 2007Q3

REPORT INFORMATION
  Report Type: 
  Country: None (occurrence: None)
  Receive Date: 20070716
  Receipt Date: 20070705
  Transmission Date: 20080115
  Serious: Yes (Other)
  Sender: FDA-Public Use
  Company Number: IT-ELI_LILLY_AND_COMPANY-IT200707002895

PATIENT
  Age: 65 Year
  Sex: Male

DRUGS (3)
  1. ALIMTA [Suspect]
     Indication: LUNG CANCER METASTATIC
     Dates: start: 20070501
  2. TARCEVA [Concomitant]
  3. CORTICOSTEROIDS [Concomitant]

REACTIONS (1)
  - MYOCARDIAL INFARCTION [None]
